FAERS Safety Report 6375174-6 (Version None)
Quarter: 2009Q3

REPORT INFORMATION
  Report Type: 
  Country: None (occurrence: None)
  Receive Date: 20090924
  Receipt Date: 20090915
  Transmission Date: 20100115
  Serious: Yes (Hospitalization, Other)
  Sender: FDA-Public Use
  Company Number: BR-ASTRAZENECA-2009SE13513

PATIENT
  Age: 51 Year
  Sex: Female
  Weight: 62 kg

DRUGS (2)
  1. SYMBICORT [Suspect]
     Indication: ASTHMA
     Dosage: 320/9 MCG
     Route: 055
     Dates: start: 20060101, end: 20090911
  2. PREDNISONE [Concomitant]
     Route: 048

REACTIONS (13)
  - ABDOMINAL DISTENSION [None]
  - ASTHMA [None]
  - BLOOD PRESSURE INCREASED [None]
  - DRUG DOSE OMISSION [None]
  - HYPERHIDROSIS [None]
  - INSOMNIA [None]
  - LARYNGEAL OEDEMA [None]
  - RASH [None]
  - RESTLESSNESS [None]
  - SWELLING [None]
  - TACHYCARDIA [None]
  - WEIGHT INCREASED [None]
  - WHEEZING [None]
